FAERS Safety Report 21726849 (Version 1)
Quarter: 2022Q4

REPORT INFORMATION
  Report Type: Spontaneous
  Country: CN (occurrence: CN)
  Receive Date: 20221214
  Receipt Date: 20221214
  Transmission Date: 20230112
  Serious: Yes (Other)
  Sender: FDA-Public Use
  Company Number: None

PATIENT
  Age: 10 Year
  Sex: Male
  Weight: 32.5 kg

DRUGS (12)
  1. IFOSFAMIDE [Suspect]
     Active Substance: IFOSFAMIDE
     Indication: Neoplasm malignant
     Dosage: 0.8 G, QD
     Route: 041
     Dates: start: 20220209, end: 20220212
  2. IFOSFAMIDE [Suspect]
     Active Substance: IFOSFAMIDE
     Indication: Chemotherapy
  3. IFOSFAMIDE [Suspect]
     Active Substance: IFOSFAMIDE
     Indication: CNS germinoma
  4. MESNA [Suspect]
     Active Substance: MESNA
     Indication: Neoplasm malignant
     Dosage: UNK
     Route: 065
     Dates: start: 20220209
  5. MESNA [Suspect]
     Active Substance: MESNA
     Indication: Chemotherapy
  6. MESNA [Suspect]
     Active Substance: MESNA
     Indication: CNS germinoma
  7. ETOPOSIDE [Suspect]
     Active Substance: ETOPOSIDE
     Indication: Neoplasm malignant
     Dosage: 0.05 G QD
     Route: 041
     Dates: start: 20220209, end: 20220212
  8. ETOPOSIDE [Suspect]
     Active Substance: ETOPOSIDE
     Indication: Chemotherapy
  9. ETOPOSIDE [Suspect]
     Active Substance: ETOPOSIDE
     Indication: CNS germinoma
  10. CISPLATIN [Suspect]
     Active Substance: CISPLATIN
     Indication: Neoplasm malignant
     Dosage: 20 MG, QD
     Route: 041
     Dates: start: 20220209, end: 20220211
  11. CISPLATIN [Suspect]
     Active Substance: CISPLATIN
     Indication: Chemotherapy
  12. CISPLATIN [Suspect]
     Active Substance: CISPLATIN
     Indication: CNS germinoma

REACTIONS (1)
  - Myelosuppression [Recovering/Resolving]

NARRATIVE: CASE EVENT DATE: 20220214
